FAERS Safety Report 5413610-X (Version None)
Quarter: 2007Q3

REPORT INFORMATION
  Report Type: 
  Country: None (occurrence: None)
  Receive Date: 20070814
  Receipt Date: 20060926
  Transmission Date: 20080115
  Serious: No
  Sender: FDA-Public Use
  Company Number: US-BRISTOL-MYERS SQUIBB COMPANY-13522073

PATIENT
  Age: 49 Year
  Sex: Female
  Weight: 105 kg

DRUGS (6)
  1. GLUCOVANCE [Suspect]
     Dates: end: 20060816
  2. BYETTA [Concomitant]
     Indication: TYPE 2 DIABETES MELLITUS
     Route: 058
     Dates: start: 20060816
  3. METFORMIN HCL [Concomitant]
     Dates: start: 20060816
  4. AVANDIA [Concomitant]
     Dates: end: 20060815
  5. COZAAR [Concomitant]
  6. GEMFIBROZIL [Concomitant]
     Dates: start: 20060701

REACTIONS (2)
  - BLOOD GLUCOSE DECREASED [None]
  - NAUSEA [None]
